FAERS Safety Report 7190272-5 (Version None)
Quarter: 2010Q4

REPORT INFORMATION
  Report Type: 
  Country: None (occurrence: None)
  Receive Date: 20101223
  Receipt Date: 20101217
  Transmission Date: 20110411
  Serious: Yes (Hospitalization)
  Sender: FDA-Public Use
  Company Number: NO-PFIZER INC-2010175288

PATIENT
  Age: 70 Year
  Sex: Female

DRUGS (2)
  1. ZYVOX [Suspect]
     Indication: POST PROCEDURAL INFECTION
     Dosage: 600 MG, 2X/DAY
     Dates: start: 20091122, end: 20100128
  2. CIPROXIN [Concomitant]
     Dates: start: 20091122

REACTIONS (4)
  - ANAEMIA [None]
  - HYPERAMYLASAEMIA [None]
  - LACTIC ACIDOSIS [None]
  - THROMBOCYTOPENIA [None]
